FAERS Safety Report 26146678 (Version 1)
Quarter: 2025Q4

REPORT INFORMATION
  Report Type: Spontaneous
  Country: EU (occurrence: EU)
  Receive Date: 20251211
  Receipt Date: 20251211
  Transmission Date: 20260118
  Serious: Yes (Hospitalization, Other)
  Sender: PFIZER
  Company Number: None

PATIENT
  Age: 80 Year
  Sex: Female
  Weight: 84 kg

DRUGS (3)
  1. BRAFTOVI [Suspect]
     Active Substance: ENCORAFENIB
     Indication: Neuroendocrine carcinoma
     Dosage: 300 MG
     Route: 048
     Dates: start: 20250915
  2. MEKTOVI [Suspect]
     Active Substance: BINIMETINIB
     Indication: Neuroendocrine carcinoma
     Dosage: 90 MG
     Route: 048
     Dates: start: 20250915
  3. PEMBROLIZUMAB [Concomitant]
     Active Substance: PEMBROLIZUMAB
     Indication: Neuroendocrine carcinoma
     Dosage: UNK
     Route: 042
     Dates: start: 20250915

REACTIONS (3)
  - Acute kidney injury [Not Recovered/Not Resolved]
  - Rhabdomyolysis [Not Recovered/Not Resolved]
  - Off label use [Unknown]

NARRATIVE: CASE EVENT DATE: 20250915
